FAERS Safety Report 8363683-X (Version None)
Quarter: 2012Q2

REPORT INFORMATION
  Report Type: 
  Country: None (occurrence: None)
  Receive Date: 20120516
  Receipt Date: 20120509
  Transmission Date: 20120825
  Serious: Yes (Other)
  Sender: FDA-Public Use
  Company Number: US-JNJFOC-20120511955

PATIENT
  Age: 7 Year
  Sex: Female
  Weight: 22.68 kg

DRUGS (1)
  1. BENADRYL [Suspect]
     Indication: PRODUCT USED FOR UNKNOWN INDICATION
     Route: 048
     Dates: start: 20120509

REACTIONS (3)
  - HYPERSOMNIA [None]
  - LETHARGY [None]
  - DYSPNOEA [None]
